FAERS Safety Report 9651472 (Version 1)
Quarter: 2013Q4

REPORT INFORMATION
  Report Type: Spontaneous
  Country: TW (occurrence: TW)
  Receive Date: 20131029
  Receipt Date: 20131029
  Transmission Date: 20140711
  Serious: Yes (Other)
  Sender: FDA-Public Use
  Company Number: TW-MYLANLABS-2013S1023478

PATIENT
  Age: 54 Year
  Sex: Female

DRUGS (4)
  1. IFOSFAMIDE [Suspect]
     Indication: UTERINE CANCER
     Route: 065
  2. IFOSFAMIDE [Suspect]
     Indication: METASTASES TO LUNG
     Route: 065
  3. PACLITAXEL [Suspect]
     Indication: UTERINE CANCER
     Route: 065
  4. PACLITAXEL [Suspect]
     Indication: METASTASES TO LUNG
     Route: 065

REACTIONS (2)
  - Neutropenic sepsis [Unknown]
  - Nail ridging [Unknown]
